FAERS Safety Report 7364801-2 (Version None)
Quarter: 2011Q1

REPORT INFORMATION
  Report Type: 
  Country: None (occurrence: None)
  Receive Date: 20110321
  Receipt Date: 20110309
  Transmission Date: 20110831
  Serious: Yes (Hospitalization)
  Sender: FDA-Public Use
  Company Number: PHHY2011CA19576

PATIENT
  Age: 55 Year
  Sex: Female

DRUGS (1)
  1. RASILEZ [Suspect]
     Dosage: 150 MG, UNK
     Dates: start: 20110108

REACTIONS (1)
  - ACUTE PULMONARY OEDEMA [None]
